FAERS Safety Report 7758774-8 (Version None)
Quarter: 2011Q3

REPORT INFORMATION
  Report Type: 
  Country: None (occurrence: None)
  Receive Date: 20110919
  Receipt Date: 20100823
  Transmission Date: 20111222
  Serious: No
  Sender: FDA-Public Use
  Company Number: CH-BAYER-201034946GPV

PATIENT
  Age: 62 Year
  Sex: Female
  Weight: 59.86 kg

DRUGS (2)
  1. EXTAVIA [Suspect]
     Indication: MULTIPLE SCLEROSIS
     Dosage: 0.187 MG, QOD
     Route: 058
     Dates: start: 20100528
  2. BETASERON [Suspect]
     Indication: PRODUCT USED FOR UNKNOWN INDICATION
     Dosage: 0.125 MG, UNK
     Route: 065

REACTIONS (4)
  - CHILLS [None]
  - MALAISE [None]
  - HEADACHE [None]
  - INFLUENZA LIKE ILLNESS [None]
